FAERS Safety Report 8100282-9 (Version None)
Quarter: 2012Q1

REPORT INFORMATION
  Report Type: 
  Country: None (occurrence: None)
  Receive Date: 20120129
  Receipt Date: 20111117
  Transmission Date: 20120608
  Serious: No
  Sender: FDA-Public Use
  Company Number: US-ABBOTT-11P-163-0875325-00

PATIENT
  Age: 40 Year
  Sex: Female

DRUGS (2)
  1. SEASONALE [Concomitant]
     Indication: CONTRACEPTION
     Dosage: DAILY
  2. HUMIRA [Suspect]
     Indication: PSORIASIS
     Dosage: INTERRUPTED
     Dates: start: 20111020, end: 20111104

REACTIONS (1)
  - BRONCHITIS [None]
